FAERS Safety Report 13019632 (Version 1)
Quarter: 2016Q4

REPORT INFORMATION
  Report Type: Spontaneous
  Country: US (occurrence: US)
  Receive Date: 20161212
  Receipt Date: 20161212
  Transmission Date: 20170207
  Serious: No
  Sender: FDA-Public Use
  Company Number: US-ROCHE-1786959

PATIENT
  Age: 64 Year
  Sex: Female

DRUGS (1)
  1. ACTEMRA [Suspect]
     Active Substance: TOCILIZUMAB
     Indication: RHEUMATOID ARTHRITIS
     Dosage: INJECT 162 MG (1 SYRINGE) SUBCUTANEOUSLY EVERY 2W
     Route: 058
     Dates: start: 201602

REACTIONS (3)
  - Stomatitis [Recovered/Resolved]
  - Nasal congestion [Unknown]
  - Glossodynia [Unknown]

NARRATIVE: CASE EVENT DATE: 20160628
